FAERS Safety Report 8042991-6 (Version None)
Quarter: 2012Q1

REPORT INFORMATION
  Report Type: 
  Country: None (occurrence: None)
  Receive Date: 20120112
  Receipt Date: 20120106
  Transmission Date: 20120608
  Serious: Yes (Hospitalization)
  Sender: FDA-Public Use
  Company Number: PHEH2012US000811

PATIENT
  Age: 39 Year
  Sex: Male

DRUGS (3)
  1. FANAPT [Suspect]
     Dosage: 8 MG, UNK
     Route: 048
     Dates: start: 20110101
  2. FANAPT [Suspect]
     Dosage: 10 MG, BID
     Route: 048
     Dates: start: 20111201, end: 20111201
  3. FANAPT [Suspect]
     Indication: SCHIZOPHRENIA
     Dosage: 6 MG, UNK
     Dates: start: 20111001

REACTIONS (2)
  - DYSPNOEA [None]
  - SWOLLEN TONGUE [None]
